FAERS Safety Report 4714493-3 (Version None)
Quarter: 2005Q3

REPORT INFORMATION
  Report Type: 
  Country: None (occurrence: None)
  Receive Date: 20050712
  Receipt Date: 20050630
  Transmission Date: 20060218
  Serious: Yes (Hospitalization, Other)
  Sender: FDA-Public Use
  Company Number: HQWYE952701JUL05

PATIENT
  Age: 75 Year
  Sex: Female

DRUGS (6)
  1. PANTOPRAZOLE SODIUM [Suspect]
     Indication: PROPHYLAXIS
     Dosage: ^SOME TIME(S) SOME DF^; ORAL
     Route: 048
     Dates: start: 20050409, end: 20050416
  2. NAPROXEN SODIUM [Suspect]
     Indication: ARTHRALGIA
     Dosage: 500 MG SOME TIME(S); ORAL
     Route: 048
     Dates: start: 20050409, end: 20050416
  3. XYZAL     (LEVOCETIRIZINE) [Suspect]
     Indication: HYPERSENSITIVITY
     Dosage: 5 MG SOME TIME(S); ORAL
     Route: 048
     Dates: start: 20050401, end: 20050421
  4. CO-RENITEC  (ENALAPRIL MALEATE/HYDROVHLOLOTHIAZIDE) [Concomitant]
  5. LEVOTHHHROX  (LEVOTHYROXINE SODIUM) [Concomitant]
  6. CORGARD [Concomitant]

REACTIONS (9)
  - BLISTER [None]
  - CHEILITIS [None]
  - LEUKOPENIA [None]
  - LYMPHOPENIA [None]
  - MOUTH ULCERATION [None]
  - PYREXIA [None]
  - RASH ERYTHEMATOUS [None]
  - TOXIC SKIN ERUPTION [None]
  - URTICARIA [None]
